FAERS Safety Report 14250371 (Version 2)
Quarter: 2018Q4

REPORT INFORMATION
  Report Type: Spontaneous
  Country: US (occurrence: US)
  Receive Date: 20171205
  Receipt Date: 20181008
  Transmission Date: 20190204
  Serious: Yes (Hospitalization, Other)
  Sender: FDA-Public Use
  Company Number: US-ALVOGEN-2017-ALVOGEN-094167

PATIENT
  Age: 43 Year
  Sex: Male

DRUGS (1)
  1. LEVETIRACETAM. [Suspect]
     Active Substance: LEVETIRACETAM
     Indication: GENERALISED TONIC-CLONIC SEIZURE
     Dosage: TONIC-CLONIC SEIZURES

REACTIONS (1)
  - Rhabdomyolysis [Recovering/Resolving]
